FAERS Safety Report 18544239 (Version 3)
Quarter: 2021Q3

REPORT INFORMATION
  Report Type: Other
  Country: JP (occurrence: JP)
  Receive Date: 20201125
  Receipt Date: 20210820
  Transmission Date: 20211014
  Serious: Yes (Hospitalization)
  Sender: FDA-Public Use
  Company Number: JP-ROCHE-2717453

PATIENT
  Age: 54 Year
  Sex: Male

DRUGS (14)
  1. PREDNISOLONE. [Suspect]
     Active Substance: PREDNISOLONE
     Route: 065
  2. DEXAMETHASONE. [Suspect]
     Active Substance: DEXAMETHASONE
     Indication: IMMUNE THROMBOCYTOPENIA
     Dosage: FOR 4 DAYS
     Route: 065
  3. ROMIPLOSTIM [Concomitant]
     Active Substance: ROMIPLOSTIM
  4. RITUXAN [Suspect]
     Active Substance: RITUXIMAB
     Indication: IMMUNE THROMBOCYTOPENIA
     Route: 041
     Dates: start: 201711
  5. PREDNISOLONE. [Suspect]
     Active Substance: PREDNISOLONE
     Route: 065
  6. ROMIPLOSTIM [Concomitant]
     Active Substance: ROMIPLOSTIM
     Indication: IMMUNE THROMBOCYTOPENIA
  7. ENALAPRIL MALEATE. [Concomitant]
     Active Substance: ENALAPRIL MALEATE
  8. OLMESARTAN MEDOXOMIL. [Concomitant]
     Active Substance: OLMESARTAN MEDOXOMIL
  9. FEBUXOSTAT. [Concomitant]
     Active Substance: FEBUXOSTAT
  10. PREDNISOLONE. [Suspect]
     Active Substance: PREDNISOLONE
     Indication: IMMUNE THROMBOCYTOPENIA
     Route: 065
  11. PREDNISOLONE. [Suspect]
     Active Substance: PREDNISOLONE
     Route: 065
  12. VOGLIBOSE [Concomitant]
     Active Substance: VOGLIBOSE
  13. LINAGLIPTIN [Concomitant]
     Active Substance: LINAGLIPTIN
  14. AZELNIDIPINE [Concomitant]
     Active Substance: AZELNIDIPINE

REACTIONS (4)
  - Hepatitis C [Recovered/Resolved]
  - Glomerulonephritis membranoproliferative [Recovering/Resolving]
  - Hepatic function abnormal [Unknown]
  - Renal failure [Recovering/Resolving]
